FAERS Safety Report 9553174 (Version 1)
Quarter: 2013Q3

REPORT INFORMATION
  Report Type: Spontaneous
  Country: US (occurrence: None)
  Receive Date: 20130724
  Receipt Date: 20130724
  Transmission Date: 20140515
  Serious: Yes (Disabling)
  Sender: FDA-Public Use
  Company Number: PHEH2012US019738

PATIENT
  Age: 58 Year
  Sex: Female

DRUGS (10)
  1. GLEEVEC [Suspect]
     Indication: SOFT TISSUE CANCER
     Route: 048
     Dates: start: 20120623
  2. ALDACTONE (SPIRONOLACTONE) [Concomitant]
  3. FUROSEMIDE [Concomitant]
  4. BYSTOLIC (NEBIVOLOL HYDROCHLORIDE) [Concomitant]
  5. SYNTHROID (LEVOTHYROXINE SODIUM) [Concomitant]
  6. PLAVIX (CLOPIDOGREL SULFATE) [Concomitant]
  7. PREVACID (LANSOPRAZOLE) [Concomitant]
  8. LORAZEPAM [Concomitant]
  9. ASPIRIN (ACETYLSALICYLIC ACID) [Concomitant]
  10. METOLAZONE (METOLAZONE) [Concomitant]

REACTIONS (2)
  - Dyspnoea [None]
  - Oedema [None]
